FAERS Safety Report 5168477-4 (Version None)
Quarter: 2006Q4

REPORT INFORMATION
  Report Type: 
  Country: None (occurrence: None)
  Receive Date: 20061208
  Receipt Date: 20061129
  Transmission Date: 20070319
  Serious: Yes (Hospitalization)
  Sender: FDA-Public Use
  Company Number: FR-ROCHE-473349

PATIENT
  Age: 33 Year
  Sex: Female

DRUGS (2)
  1. ROACCUTANE [Suspect]
     Indication: DRUG USE FOR UNKNOWN INDICATION
     Route: 048
     Dates: start: 19960801, end: 19960818
  2. UNKNOWN TABLET [Concomitant]
     Dosage: AUTOMEDICATION WITH REMAINING TABLETS OF A PRIOR PRESCRIPTION.

REACTIONS (3)
  - ABORTION SPONTANEOUS [None]
  - DRUG EXPOSURE DURING PREGNANCY [None]
  - UNINTENDED PREGNANCY [None]
